FAERS Safety Report 8957270 (Version 2)
Quarter: 2013Q1

REPORT INFORMATION
  Report Type: Spontaneous
  Country: DK (occurrence: None)
  Receive Date: 20121130
  Receipt Date: 20121210
  Transmission Date: 20140127
  Serious: Yes (Other)
  Sender: FDA-Public Use
  Company Number: 2012MA013640

PATIENT
  Sex: Male

DRUGS (2)
  1. PROPRANOLOL HCL [Suspect]
     Indication: MIGRAINE
  2. LAMOTRIGINE [Suspect]
     Indication: BIPOLAR II DISORDER
     Dates: start: 20120913

REACTIONS (2)
  - Drug interaction [None]
  - Syncope [None]
